FAERS Safety Report 7272859-4 (Version None)
Quarter: 2010Q4

REPORT INFORMATION
  Report Type: 
  Country: None (occurrence: None)
  Receive Date: 20101201
  Receipt Date: 20100303
  Transmission Date: 20110411
  Serious: Yes (Hospitalization)
  Sender: FDA-Public Use
  Company Number: 303124

PATIENT
  Age: 80 Year
  Sex: Female
  Weight: 59 kg

DRUGS (6)
  1. NOVOLOG [Suspect]
     Indication: DIABETES MELLITUS
     Dosage: 14 IU, QD, SUBCUTANEOUS
     Route: 058
     Dates: start: 20000101
  2. LEVOTHYROXINE SODIUM [Concomitant]
  3. LEXAPRO [Concomitant]
  4. METOPROLOL SUCCINATE [Concomitant]
  5. TRILIPIX [Concomitant]
  6. MAGNESIUM OXIDE (MAGNESIUM OXIDE) [Concomitant]

REACTIONS (2)
  - BLOOD GLUCOSE INCREASED [None]
  - DIABETIC KETOACIDOSIS [None]
